FAERS Safety Report 24568126 (Version 2)
Quarter: 2024Q4

REPORT INFORMATION
  Report Type: Spontaneous
  Country: JP (occurrence: JP)
  Receive Date: 20241031
  Receipt Date: 20241213
  Transmission Date: 20250115
  Serious: Yes (Other)
  Sender: UCB
  Company Number: JP-UCBJ-CD202410229UCBPHAPROD

PATIENT
  Age: 7 Year
  Sex: Female

DRUGS (2)
  1. LEVETIRACETAM [Suspect]
     Active Substance: LEVETIRACETAM
     Indication: Epilepsy
     Dosage: UNK
     Route: 048
  2. PHENOBARBITAL [Concomitant]
     Active Substance: PHENOBARBITAL
     Indication: Epilepsy
     Dosage: UNK
     Route: 048

REACTIONS (8)
  - Cerebral atrophy [Unknown]
  - Angle closure glaucoma [Recovered/Resolved]
  - Dysmorphism [Unknown]
  - Cerebral ventricle dilatation [Unknown]
  - Bone development abnormal [Unknown]
  - Mechanical ventilation [Unknown]
  - Eye operation [Unknown]
  - Vitrectomy [Unknown]
